FAERS Safety Report 9695685 (Version 1)
Quarter: 2013Q4

REPORT INFORMATION
  Report Type: Spontaneous
  Country: US (occurrence: US)
  Receive Date: 20131119
  Receipt Date: 20131119
  Transmission Date: 20140711
  Serious: No
  Sender: FDA-Public Use
  Company Number: US-VERTEX PHARMACEUTICALS INC-2013-011114

PATIENT
  Age: 43 Year
  Sex: Female
  Weight: 101.59 kg

DRUGS (7)
  1. INCIVEK [Suspect]
     Indication: HEPATITIS C
     Dosage: 2 DF, TID
     Route: 048
     Dates: start: 20131111
  2. RIBASPHERE [Suspect]
     Indication: HEPATITIS C
     Dosage: 3 DF, BID
     Route: 048
     Dates: start: 20131111
  3. PEGASYS [Suspect]
     Indication: HEPATITIS C
     Dosage: 180 ?G, QW
     Route: 058
     Dates: start: 20131111
  4. EFFEXOR [Concomitant]
     Indication: DEPRESSION
     Dosage: 150 MG, BID
     Route: 048
  5. EFFEXOR [Concomitant]
     Indication: ANXIETY
  6. ASA [Concomitant]
     Dosage: 81 MG, QD
  7. JUNEL FE [Concomitant]
     Indication: CONTRACEPTION
     Dosage: 30 MG, QD

REACTIONS (2)
  - Insomnia [Unknown]
  - Anxiety [Unknown]
